FAERS Safety Report 22311166 (Version 2)
Quarter: 2023Q2

REPORT INFORMATION
  Report Type: Spontaneous
  Country: US (occurrence: US)
  Receive Date: 20230511
  Receipt Date: 20230525
  Transmission Date: 20230722
  Serious: Yes (Other)
  Sender: FDA-Public Use
  Company Number: US-TEVA-2023-US-2884610

PATIENT
  Age: 57 Year
  Sex: Female

DRUGS (11)
  1. TRIAMCINOLONE [Suspect]
     Active Substance: TRIAMCINOLONE
     Indication: Granuloma annulare
     Dosage: 2.5MG/CC INJECTIONS
     Route: 026
  2. TRIAMCINOLONE [Suspect]
     Active Substance: TRIAMCINOLONE
     Indication: Granuloma annulare
     Route: 061
  3. CLOBETASOL [Suspect]
     Active Substance: CLOBETASOL
     Indication: Granuloma annulare
     Dosage: TWICE A DAY 5 TIMES WEEKLY
     Route: 061
  4. OFLOXACIN [Suspect]
     Active Substance: OFLOXACIN
     Indication: Granuloma annulare
     Dosage: ROM [RIFAMPIN, OFLOXACIN, AND MINOCYCLINE] THERAPY) IN A SINGLE ORAL DOSE ONCE A MONTH FOR 3 MONTHS
     Route: 048
  5. METHOTREXATE [Suspect]
     Active Substance: METHOTREXATE
     Indication: Rheumatoid arthritis
     Route: 065
  6. MINOCYCLINE [Suspect]
     Active Substance: MINOCYCLINE HYDROCHLORIDE
     Indication: Granuloma annulare
     Dosage: ROM [RIFAMPIN, OFLOXACIN, AND MINOCYCLINE] THERAPY) IN A SINGLE ORAL DOSE ONCE A MONTH FOR 3 MONTHS
     Route: 048
  7. RIFAMPIN [Suspect]
     Active Substance: RIFAMPIN
     Indication: Granuloma annulare
     Dosage: ROM [RIFAMPIN, OFLOXACIN, AND MINOCYCLINE] THERAPY) IN A SINGLE ORAL DOSE ONCE A MONTH FOR 3 MONTHS
     Route: 048
  8. RUXOLITINIB [Suspect]
     Active Substance: RUXOLITINIB
     Indication: Granuloma annulare
     Dosage: TWICE A DAY FOR 6 WEEKS
     Route: 061
  9. ETANERCEPT [Suspect]
     Active Substance: ETANERCEPT
     Indication: Rheumatoid arthritis
     Route: 065
  10. UPADACITINIB [Concomitant]
     Active Substance: UPADACITINIB
     Indication: Granuloma annulare
     Dosage: 15 MILLIGRAM DAILY;
     Route: 065
  11. CLOTRIMAZOLE [Concomitant]
     Active Substance: CLOTRIMAZOLE
     Indication: Product used for unknown indication
     Route: 061

REACTIONS (2)
  - Granuloma annulare [Recovered/Resolved]
  - Drug ineffective [Unknown]
